FAERS Safety Report 24428381 (Version 1)
Quarter: 2024Q4

REPORT INFORMATION
  Report Type: Spontaneous
  Country: US (occurrence: None)
  Receive Date: 20241011
  Receipt Date: 20241011
  Transmission Date: 20250114
  Serious: Yes (Hospitalization)
  Sender: Public
  Company Number: None

PATIENT
  Sex: Female

DRUGS (1)
  1. NUCALA [Suspect]
     Active Substance: MEPOLIZUMAB
     Dosage: FREQUENCY : MONTHLY;?
     Route: 042
     Dates: start: 201709

REACTIONS (3)
  - Pneumonia [None]
  - COVID-19 [None]
  - Therapy interrupted [None]
